FAERS Safety Report 22199211 (Version 2)
Quarter: 2023Q2

REPORT INFORMATION
  Report Type: Report from Study
  Country: US (occurrence: US)
  Receive Date: 20230411
  Receipt Date: 20230419
  Transmission Date: 20230722
  Serious: Yes (Hospitalization)
  Sender: FDA-Public Use
  Company Number: US-ABBVIE-4724697

PATIENT
  Sex: Female

DRUGS (1)
  1. SKYRIZI [Suspect]
     Active Substance: RISANKIZUMAB-RZAA
     Indication: Product used for unknown indication
     Dosage: 360MG/2.4M
     Route: 058

REACTIONS (3)
  - Gastric disorder [Unknown]
  - Abdominal pain [Not Recovered/Not Resolved]
  - Gastrointestinal infection [Not Recovered/Not Resolved]
